FAERS Safety Report 7133902-6 (Version None)
Quarter: 2010Q4

REPORT INFORMATION
  Report Type: 
  Country: None (occurrence: None)
  Receive Date: 20101203
  Receipt Date: 20101011
  Transmission Date: 20110411
  Serious: No
  Sender: FDA-Public Use
  Company Number: US-BAYER-201022719BCC

PATIENT

DRUGS (1)
  1. RID LICE KILLING SHAMPOO AND CONDITION [Suspect]
     Dosage: UNK
     Dates: start: 20101011

REACTIONS (1)
  - NO ADVERSE EVENT [None]
